FAERS Safety Report 7712494-4 (Version None)
Quarter: 2011Q3

REPORT INFORMATION
  Report Type: 
  Country: None (occurrence: None)
  Receive Date: 20110826
  Receipt Date: 20110826
  Transmission Date: 20111222
  Serious: Yes (Disabling)
  Sender: FDA-Public Use
  Company Number: None

PATIENT
  Age: 52 Year
  Sex: Female
  Weight: 58.967 kg

DRUGS (1)
  1. LEVAQUIN [Suspect]
     Indication: CYSTITIS
     Dosage: 750MG
     Dates: start: 20110809, end: 20110815

REACTIONS (7)
  - ARTHRALGIA [None]
  - SKIN EXFOLIATION [None]
  - OROPHARYNGEAL PAIN [None]
  - UNEVALUABLE EVENT [None]
  - PAIN IN EXTREMITY [None]
  - RASH [None]
  - MYALGIA [None]
